FAERS Safety Report 17152141 (Version 1)
Quarter: 2019Q4

REPORT INFORMATION
  Report Type: Spontaneous
  Country: US (occurrence: US)
  Receive Date: 20191121
  Receipt Date: 20191121
  Transmission Date: 20200122
  Serious: No
  Sender: FDA-Public Use
  Company Number: None

PATIENT
  Age: 65 Year
  Sex: Female

DRUGS (2)
  1. SIMVASTATIN 5MG TABLET ^AMEL^ [Concomitant]
     Active Substance: SIMVASTATIN
  2. TACROLIMUS CAP 1MG [Suspect]
     Active Substance: TACROLIMUS
     Route: 048
     Dates: start: 201712

REACTIONS (1)
  - Myalgia [None]

NARRATIVE: CASE EVENT DATE: 20191101
